FAERS Safety Report 5933159-5 (Version None)
Quarter: 2008Q4

REPORT INFORMATION
  Report Type: 
  Country: None (occurrence: None)
  Receive Date: 20081023
  Receipt Date: 20070704
  Transmission Date: 20090506
  Serious: Yes (Hospitalization, Other)
  Sender: FDA-Public Use
  Company Number: 2006AL002070

PATIENT
  Age: 92 Year
  Sex: Female

DRUGS (4)
  1. IBUPROFEN TABLETS [Suspect]
     Indication: BACK PAIN
     Dosage: 400 MG; TID; PO
     Route: 048
     Dates: end: 20060324
  2. INDAPAMIDE [Suspect]
     Dosage: 2.5 MG; QD; PO
     Route: 048
     Dates: end: 20060324
  3. AMLODIPINE [Concomitant]
  4. ATENOLOL [Concomitant]

REACTIONS (5)
  - BLOOD POTASSIUM DECREASED [None]
  - BLOOD SODIUM DECREASED [None]
  - BLOOD UREA INCREASED [None]
  - CONFUSIONAL STATE [None]
  - MALAISE [None]
